FAERS Safety Report 6020631-5 (Version None)
Quarter: 2008Q4

REPORT INFORMATION
  Report Type: 
  Country: None (occurrence: None)
  Receive Date: 20081222
  Receipt Date: 20081209
  Transmission Date: 20090506
  Serious: Yes (Death)
  Sender: FDA-Public Use
  Company Number: 2008AP003154

PATIENT
  Age: 74 Year
  Sex: Male

DRUGS (8)
  1. AMLODIPINE BESYLATE [Suspect]
     Dosage: 5 MG; QD PO
     Route: 048
  2. PERINDOPRIL ERBUMINE (PERINDOPRIL ERBUMINE) [Suspect]
     Dosage: 8 MG; QD PO
     Route: 048
  3. ACETYLSALICYLIC ACID SRT [Suspect]
     Dosage: 75 MG; QD PO
     Route: 048
  4. IBUPROFEN [Suspect]
     Dosage: 400 MG; PO
     Route: 048
  5. OMEPRAZOLE [Suspect]
     Dosage: 20 MG; QD PO
     Route: 048
  6. SIMVASTATIN [Suspect]
     Dosage: PO
     Route: 048
  7. AMXOICILLIN (AMOXICILLIN) [Concomitant]
  8. LEVOTHYROXINE SODIUM [Concomitant]

REACTIONS (12)
  - ACUTE RESPIRATORY DISTRESS SYNDROME [None]
  - ALVEOLITIS [None]
  - DERMATOMYOSITIS [None]
  - DRUG ERUPTION [None]
  - HAEMOPTYSIS [None]
  - LOWER RESPIRATORY TRACT INFECTION [None]
  - MUSCULAR WEAKNESS [None]
  - OROPHARYNGEAL PAIN [None]
  - RASH [None]
  - RENAL FAILURE ACUTE [None]
  - RESPIRATORY FAILURE [None]
  - WEIGHT DECREASED [None]
